FAERS Safety Report 9462942 (Version 1)
Quarter: 2013Q3

REPORT INFORMATION
  Report Type: Spontaneous
  Country: US (occurrence: US)
  Receive Date: 20130816
  Receipt Date: 20130816
  Transmission Date: 20140515
  Serious: Yes (Other)
  Sender: FDA-Public Use
  Company Number: ALCN2013US004187

PATIENT
  Age: 81 Year
  Sex: Male

DRUGS (1)
  1. BRIMONIDINE [Suspect]
     Dosage: 1 GTT, Q8H
     Route: 047
     Dates: start: 20130325

REACTIONS (3)
  - Fall [Unknown]
  - Dizziness [Unknown]
  - Dysstasia [Unknown]
